FAERS Safety Report 10052024 (Version 2)
Quarter: 2015Q2

REPORT INFORMATION
  Report Type: Report from Study
  Country: FR (occurrence: FR)
  Receive Date: 20140402
  Receipt Date: 20150501
  Transmission Date: 20150821
  Serious: Yes (Hospitalization)
  Sender: FDA-Public Use
  Company Number: FR-ROCHE-1371336

PATIENT
  Age: 69 Year
  Sex: Female

DRUGS (10)
  1. METHOTREXATE [Concomitant]
     Active Substance: METHOTREXATE
     Dosage: D15
     Route: 065
  2. RITUXIMAB [Suspect]
     Active Substance: RITUXIMAB
     Indication: RHEUMATOID ARTHRITIS
     Dosage: DAY 1 (D1).
     Route: 042
     Dates: start: 20080516, end: 20140408
  3. METHOTREXATE [Concomitant]
     Active Substance: METHOTREXATE
     Route: 065
     Dates: start: 20110503
  4. METHOTREXATE [Concomitant]
     Active Substance: METHOTREXATE
     Dosage: D1
     Route: 065
     Dates: start: 20131118
  5. CORTANCYL [Concomitant]
     Active Substance: PREDNISONE
     Route: 065
     Dates: start: 20111117
  6. METHOTREXATE [Concomitant]
     Active Substance: METHOTREXATE
     Route: 065
     Dates: start: 20100406
  7. METHOTREXATE [Concomitant]
     Active Substance: METHOTREXATE
     Route: 065
     Dates: start: 20101020
  8. CORTANCYL [Concomitant]
     Active Substance: PREDNISONE
     Route: 065
     Dates: start: 20100406
  9. CORTANCYL [Concomitant]
     Active Substance: PREDNISONE
     Route: 065
     Dates: start: 20080516
  10. CORTANCYL [Concomitant]
     Active Substance: PREDNISONE
     Route: 065
     Dates: start: 20090930

REACTIONS (10)
  - Partial seizures [Not Recovered/Not Resolved]
  - Chest pain [Recovered/Resolved]
  - Device dislocation [Not Recovered/Not Resolved]
  - Neutropenia [Not Recovered/Not Resolved]
  - Cholecystectomy [Recovered/Resolved]
  - Pancreatitis [Recovered/Resolved]
  - Herpes zoster [Not Recovered/Not Resolved]
  - Pain in extremity [Not Recovered/Not Resolved]
  - Encephalitis [Not Recovered/Not Resolved]
  - Synovial rupture [Recovered/Resolved]

NARRATIVE: CASE EVENT DATE: 201109
